FAERS Safety Report 15777793 (Version 1)
Quarter: 2018Q4

REPORT INFORMATION
  Report Type: Spontaneous
  Country: US (occurrence: US)
  Receive Date: 20181231
  Receipt Date: 20181231
  Transmission Date: 20190205
  Serious: Yes (Hospitalization)
  Sender: FDA-Public Use
  Company Number: US-PFM-2018-15013

PATIENT

DRUGS (1)
  1. HEMANGEOL [Suspect]
     Active Substance: PROPRANOLOL HYDROCHLORIDE
     Indication: INFANTILE HAEMANGIOMA
     Dosage: 3 ML, BID (2/DAY)
     Route: 048
     Dates: start: 201804

REACTIONS (6)
  - Nausea [Unknown]
  - Gastroenteritis [Unknown]
  - Product use issue [Unknown]
  - Product administered to patient of inappropriate age [Unknown]
  - Dehydration [Unknown]
  - Off label use [Unknown]
